FAERS Safety Report 10029125 (Version 5)
Quarter: 2015Q4

REPORT INFORMATION
  Report Type: Spontaneous
  Country: US (occurrence: US)
  Receive Date: 20140321
  Receipt Date: 20151211
  Transmission Date: 20160304
  Serious: Yes (Death, Hospitalization, Other)
  Sender: FDA-Public Use
  Company Number: US-SANOFI-AVENTIS-2012SA066441

PATIENT
  Age: 67 Year
  Sex: Male

DRUGS (3)
  1. PLAVIX [Suspect]
     Active Substance: CLOPIDOGREL BISULFATE
     Indication: STENT PLACEMENT
     Route: 048
     Dates: start: 200306, end: 2007
  2. PLAVIX [Suspect]
     Active Substance: CLOPIDOGREL BISULFATE
     Indication: ACUTE CORONARY SYNDROME
     Route: 048
     Dates: start: 200306, end: 2007
  3. ASPIRIN. [Concomitant]
     Active Substance: ASPIRIN
     Dates: start: 2008

REACTIONS (3)
  - Haemorrhage [Unknown]
  - Thrombotic thrombocytopenic purpura [Unknown]
  - Multiple injuries [Unknown]

NARRATIVE: CASE EVENT DATE: 20060808
